FAERS Safety Report 20801358 (Version 1)
Quarter: 2022Q2

REPORT INFORMATION
  Report Type: Report from Study
  Country: US (occurrence: US)
  Receive Date: 20220509
  Receipt Date: 20220509
  Transmission Date: 20220720
  Serious: Yes (Hospitalization)
  Sender: FDA-Public Use
  Company Number: US-UCBSA-2022025068

PATIENT
  Age: 36 Year
  Sex: Female

DRUGS (1)
  1. BRIVARACETAM [Suspect]
     Active Substance: BRIVARACETAM
     Indication: Product used for unknown indication
     Dosage: 50MG, UNK

REACTIONS (2)
  - Seizure [Unknown]
  - Panic attack [Unknown]

NARRATIVE: CASE EVENT DATE: 20220422
